FAERS Safety Report 24149229 (Version 4)
Quarter: 2025Q2

REPORT INFORMATION
  Report Type: Report from Study
  Country: US (occurrence: US)
  Receive Date: 20240729
  Receipt Date: 20250515
  Transmission Date: 20250716
  Serious: Yes (Other)
  Sender: ABBVIE
  Company Number: US-ABBVIE-5852130

PATIENT
  Age: 67 Year
  Sex: Female

DRUGS (1)
  1. SKYRIZI [Suspect]
     Active Substance: RISANKIZUMAB-RZAA
     Indication: Psoriasis
     Route: 058
     Dates: start: 20211222

REACTIONS (2)
  - Neoplasm malignant [Recovering/Resolving]
  - Therapeutic response unexpected [Unknown]

NARRATIVE: CASE EVENT DATE: 20220101
